FAERS Safety Report 25657240 (Version 1)
Quarter: 2025Q3

REPORT INFORMATION
  Report Type: Spontaneous
  Country: EU (occurrence: EU)
  Receive Date: 20250808
  Receipt Date: 20250808
  Transmission Date: 20251020
  Serious: Yes (Other)
  Sender: ACCORD
  Company Number: None

PATIENT
  Age: 70 Year
  Sex: Male
  Weight: 106 kg

DRUGS (25)
  1. FLUOROURACIL [Suspect]
     Active Substance: FLUOROURACIL
     Indication: Rectal adenocarcinoma
     Dates: start: 20250505, end: 20250506
  2. ONDANSETRON [Suspect]
     Active Substance: ONDANSETRON
     Indication: Antiemetic supportive care
     Dates: start: 20250505, end: 20250505
  3. OXALIPLATIN [Suspect]
     Active Substance: OXALIPLATIN
     Indication: Rectal adenocarcinoma
     Dates: start: 20250505, end: 20250505
  4. IRINOTECAN [Suspect]
     Active Substance: IRINOTECAN
     Indication: Rectal adenocarcinoma
     Dates: start: 20250505, end: 20250505
  5. APREPITANT [Suspect]
     Active Substance: APREPITANT
     Indication: Antiemetic supportive care
     Dates: start: 20250505, end: 20250505
  6. METHYLPREDNISOLONE [Suspect]
     Active Substance: METHYLPREDNISOLONE
     Indication: Antiemetic supportive care
     Dates: start: 20250505, end: 20250505
  7. BILASTINE [Suspect]
     Active Substance: BILASTINE
     Indication: Idiopathic histaminergic angioedema
     Dates: start: 2021, end: 20250602
  8. CALCIUM [Suspect]
     Active Substance: CALCIUM
     Indication: Rectal adenocarcinoma
     Dates: start: 20250505, end: 20250506
  9. LEVOCETIRIZINE DIHYDROCHLORIDE [Concomitant]
     Active Substance: LEVOCETIRIZINE DIHYDROCHLORIDE
     Indication: Idiopathic histaminergic angioedema
     Dates: start: 20250602
  10. IRINOTECAN [Suspect]
     Active Substance: IRINOTECAN
     Indication: Rectal adenocarcinoma
     Dates: start: 20250605, end: 20250605
  11. APREPITANT [Suspect]
     Active Substance: APREPITANT
     Indication: Antiemetic supportive care
     Dates: start: 20250506, end: 20250507
  12. APREPITANT [Suspect]
     Active Substance: APREPITANT
     Indication: Antiemetic supportive care
     Dates: start: 20250521, end: 20250521
  13. APREPITANT [Suspect]
     Active Substance: APREPITANT
     Indication: Antiemetic supportive care
     Dates: start: 20250522, end: 20250523
  14. APREPITANT [Suspect]
     Active Substance: APREPITANT
     Indication: Antiemetic supportive care
     Dates: start: 20250605, end: 20250605
  15. APREPITANT [Suspect]
     Active Substance: APREPITANT
     Indication: Antiemetic supportive care
     Dates: start: 20250606, end: 20250607
  16. ONDANSETRON [Suspect]
     Active Substance: ONDANSETRON
     Indication: Antiemetic supportive care
     Dates: start: 20250521, end: 20250521
  17. ONDANSETRON [Suspect]
     Active Substance: ONDANSETRON
     Indication: Antiemetic supportive care
     Dates: start: 20250605, end: 20250605
  18. METHYLPREDNISOLONE [Suspect]
     Active Substance: METHYLPREDNISOLONE
     Indication: Antiemetic supportive care
     Dates: start: 20250521, end: 20250521
  19. METHYLPREDNISOLONE [Suspect]
     Active Substance: METHYLPREDNISOLONE
     Indication: Antiemetic supportive care
     Dates: start: 20250605, end: 20250605
  20. FLUOROURACIL [Suspect]
     Active Substance: FLUOROURACIL
     Indication: Rectal adenocarcinoma
     Dates: start: 20250521, end: 20250522
  21. FLUOROURACIL [Suspect]
     Active Substance: FLUOROURACIL
     Indication: Rectal adenocarcinoma
     Dates: start: 20250605, end: 20250606
  22. CALCIUM [Suspect]
     Active Substance: CALCIUM
     Indication: Rectal adenocarcinoma
     Dates: start: 20250521, end: 20250522
  23. CALCIUM [Suspect]
     Active Substance: CALCIUM
     Indication: Rectal adenocarcinoma
     Dates: start: 20250605, end: 20250606
  24. OXALIPLATIN [Suspect]
     Active Substance: OXALIPLATIN
     Indication: Rectal adenocarcinoma
     Dates: start: 20250521, end: 20250521
  25. IRINOTECAN [Suspect]
     Active Substance: IRINOTECAN
     Indication: Rectal adenocarcinoma
     Dates: start: 20250521, end: 20250521

REACTIONS (1)
  - Palpitations [Recovered/Resolved]

NARRATIVE: CASE EVENT DATE: 20250522
